FAERS Safety Report 8599582-8 (Version None)
Quarter: 2012Q3

REPORT INFORMATION
  Report Type: 
  Country: None (occurrence: None)
  Receive Date: 20120816
  Receipt Date: 20120807
  Transmission Date: 20120928
  Serious: Yes (Hospitalization)
  Sender: FDA-Public Use
  Company Number: US-ACTELION-A-US2012-65591

PATIENT
  Age: 50 Year
  Sex: Female
  Weight: 59.864 kg

DRUGS (4)
  1. TADALAFIL [Concomitant]
  2. EPOPROSTENOL SODIUM [Suspect]
     Indication: PULMONARY ARTERIAL HYPERTENSION
     Dosage: 44 NG/KG, PER MIN
     Route: 042
     Dates: start: 20110305
  3. TRACLEER [Suspect]
     Indication: PULMONARY ARTERIAL HYPERTENSION
     Dosage: UNK
     Route: 048
     Dates: start: 20120501
  4. COUMADIN [Concomitant]

REACTIONS (11)
  - DYSPNOEA EXERTIONAL [None]
  - CONDITION AGGRAVATED [None]
  - ASCITES [None]
  - INFECTION [None]
  - CARDIAC FAILURE CONGESTIVE [None]
  - PH BODY FLUID ABNORMAL [None]
  - FLUID RETENTION [None]
  - WEIGHT INCREASED [None]
  - OEDEMA PERIPHERAL [None]
  - FLUID OVERLOAD [None]
  - PERICARDIAL EFFUSION [None]
